FAERS Safety Report 22270802 (Version 1)
Quarter: 2023Q2

REPORT INFORMATION
  Report Type: Spontaneous
  Country: CN (occurrence: CN)
  Receive Date: 20230501
  Receipt Date: 20230501
  Transmission Date: 20230722
  Serious: Yes (Hospitalization)
  Sender: FDA-Public Use
  Company Number: CN-SA-SAC20230425001763

PATIENT
  Age: 73 Year
  Sex: Female

DRUGS (3)
  1. CLOPIDOGREL BISULFATE [Suspect]
     Active Substance: CLOPIDOGREL BISULFATE
     Indication: Atrial fibrillation
     Dosage: 75 MG, QD
     Route: 048
     Dates: start: 20230301, end: 20230328
  2. WARFARIN SODIUM [Suspect]
     Active Substance: WARFARIN SODIUM
     Indication: Atrial fibrillation
     Dosage: 2.5 MG, QD
     Route: 048
     Dates: start: 20230301, end: 20230328
  3. RIVAROXABAN [Suspect]
     Active Substance: RIVAROXABAN
     Indication: Atrial fibrillation
     Dosage: 15 MG, QD
     Route: 048
     Dates: start: 20230301, end: 20230328

REACTIONS (8)
  - Coagulopathy [Recovering/Resolving]
  - Chest pain [Unknown]
  - Contusion [Unknown]
  - Conjunctival pallor [Unknown]
  - Respiratory tract congestion [Unknown]
  - Faeces discoloured [Unknown]
  - Petechiae [Unknown]
  - Overdose [Unknown]

NARRATIVE: CASE EVENT DATE: 20230301
